FAERS Safety Report 6548927-9 (Version None)
Quarter: 2010Q1

REPORT INFORMATION
  Report Type: 
  Country: None (occurrence: None)
  Receive Date: 20100125
  Receipt Date: 20100115
  Transmission Date: 20100710
  Serious: Yes (Hospitalization)
  Sender: FDA-Public Use
  Company Number: US-BIOGENIDEC-2008BI022563

PATIENT
  Age: 52 Year
  Sex: Male
  Weight: 86 kg

DRUGS (3)
  1. AVONEX [Suspect]
     Indication: MULTIPLE SCLEROSIS
     Route: 030
     Dates: start: 19980101
  2. AVONEX [Suspect]
     Route: 030
  3. AVONEX [Suspect]
     Route: 030

REACTIONS (12)
  - APPENDICITIS PERFORATED [None]
  - BACK DISORDER [None]
  - DEEP VEIN THROMBOSIS [None]
  - FATIGUE [None]
  - GASTROINTESTINAL INJURY [None]
  - HAEMATOCHEZIA [None]
  - HAEMATOCRIT DECREASED [None]
  - HAEMOGLOBIN DECREASED [None]
  - LOSS OF CONTROL OF LEGS [None]
  - MUSCLE TWITCHING [None]
  - OSTEOARTHRITIS [None]
  - PERITONITIS [None]
